FAERS Safety Report 5331547-1 (Version None)
Quarter: 2007Q2

REPORT INFORMATION
  Report Type: 
  Country: None (occurrence: None)
  Receive Date: 20070522
  Receipt Date: 20070510
  Transmission Date: 20071010
  Serious: Yes (Hospitalization)
  Sender: FDA-Public Use
  Company Number: FR-PFIZER INC-2007027870

PATIENT
  Age: 44 Year
  Sex: Male

DRUGS (2)
  1. CHAMPIX [Suspect]
     Route: 048
     Dates: start: 20070226, end: 20070315
  2. IRBESARTAN [Concomitant]
     Indication: HYPERTENSION
     Dosage: DAILY DOSE:150MG-FREQ:DAILY

REACTIONS (3)
  - ASTHENIA [None]
  - MENINGITIS VIRAL [None]
  - NAUSEA [None]
